FAERS Safety Report 17796210 (Version 2)
Quarter: 2020Q2

REPORT INFORMATION
  Report Type: Report from Study
  Country: BR (occurrence: BR)
  Receive Date: 20200517
  Receipt Date: 20200619
  Transmission Date: 20200714
  Serious: Yes (Other)
  Sender: FDA-Public Use
  Company Number: NVSC2020BR132793

PATIENT
  Age: 26 Year
  Sex: Male

DRUGS (1)
  1. COSENTYX [Suspect]
     Active Substance: SECUKINUMAB
     Indication: ANKYLOSING SPONDYLITIS
     Dosage: UNK
     Route: 065
     Dates: start: 20190812

REACTIONS (1)
  - Pain [Recovered/Resolved]

NARRATIVE: CASE EVENT DATE: 20200401
